FAERS Safety Report 11092137 (Version 1)
Quarter: 2015Q2

REPORT INFORMATION
  Report Type: Spontaneous
  Country: US (occurrence: US)
  Receive Date: 20150505
  Receipt Date: 20150505
  Transmission Date: 20150821
  Serious: Yes (Other)
  Sender: FDA-Public Use
  Company Number: US-AMGEN-USASP2015042660

PATIENT
  Age: 52 Year
  Sex: Female

DRUGS (3)
  1. ENBREL [Suspect]
     Active Substance: ETANERCEPT
     Indication: PSORIASIS
     Dosage: 50 UNK, QWK
     Route: 065
     Dates: start: 20041007
  2. ENBREL [Suspect]
     Active Substance: ETANERCEPT
     Indication: PSORIATIC ARTHROPATHY
  3. FLU VACCINE VII [Suspect]
     Active Substance: INFLUENZA VIRUS VACCINE
     Indication: PRODUCT USED FOR UNKNOWN INDICATION
     Dosage: UNK
     Route: 065

REACTIONS (16)
  - Decreased appetite [Recovered/Resolved]
  - Hyperhidrosis [Recovered/Resolved]
  - Joint stiffness [Not Recovered/Not Resolved]
  - Malaise [Recovered/Resolved]
  - Ocular hyperaemia [Recovered/Resolved]
  - Gastritis [Not Recovered/Not Resolved]
  - Musculoskeletal stiffness [Not Recovered/Not Resolved]
  - Psoriasis [Not Recovered/Not Resolved]
  - Oesophageal mass [Not Recovered/Not Resolved]
  - Cough [Not Recovered/Not Resolved]
  - Road traffic accident [Recovered/Resolved]
  - Oesophageal obstruction [Not Recovered/Not Resolved]
  - Vomiting [Not Recovered/Not Resolved]
  - Joint swelling [Not Recovered/Not Resolved]
  - Eye haemorrhage [Recovered/Resolved]
  - Dizziness [Recovered/Resolved]

NARRATIVE: CASE EVENT DATE: 2014
